FAERS Safety Report 16749334 (Version 1)
Quarter: 2019Q3

REPORT INFORMATION
  Report Type: Spontaneous
  Country: US (occurrence: US)
  Receive Date: 20190828
  Receipt Date: 20190828
  Transmission Date: 20191005
  Serious: Yes (Other)
  Sender: FDA-Public Use
  Company Number: US-ROCHE-2380808

PATIENT
  Sex: Female

DRUGS (1)
  1. OCREVUS [Suspect]
     Active Substance: OCRELIZUMAB
     Indication: RELAPSING MULTIPLE SCLEROSIS
     Dosage: YES
     Route: 042
     Dates: start: 201808

REACTIONS (9)
  - Nasal congestion [Recovered/Resolved]
  - Pain [Recovering/Resolving]
  - Multiple sclerosis [Recovering/Resolving]
  - Fatigue [Recovered/Resolved]
  - Malaise [Recovering/Resolving]
  - Nasopharyngitis [Not Recovered/Not Resolved]
  - Cough [Recovered/Resolved]
  - Swelling [Recovered/Resolved]
  - Mastication disorder [Recovered/Resolved]

NARRATIVE: CASE EVENT DATE: 201808
